FAERS Safety Report 8488020-1 (Version None)
Quarter: 2012Q3

REPORT INFORMATION
  Report Type: 
  Country: None (occurrence: None)
  Receive Date: 20120705
  Receipt Date: 20120629
  Transmission Date: 20120928
  Serious: Yes (Death, Hospitalization, Other)
  Sender: FDA-Public Use
  Company Number: PHHY2011JP110394

PATIENT
  Sex: Female
  Weight: 50 kg

DRUGS (17)
  1. EXJADE [Suspect]
     Dosage: 375 MG, DAILY
     Route: 048
     Dates: start: 20110405, end: 20110607
  2. EXJADE [Suspect]
     Dosage: 250 MG, DAILY
     Route: 048
     Dates: start: 20110308, end: 20110404
  3. NEORAL [Concomitant]
     Indication: APLASIA PURE RED CELL
     Dosage: 200 MG, UNK
     Route: 048
     Dates: start: 20101204, end: 20110607
  4. FUROSEMIDE [Concomitant]
     Indication: CARDIAC FAILURE CHRONIC
     Dosage: 20 MG, UNK
     Route: 048
     Dates: start: 20101204, end: 20110607
  5. SPIRONOLACTONE [Concomitant]
     Indication: CARDIAC FAILURE CHRONIC
     Dosage: 25 MG, UNK
     Route: 048
     Dates: start: 20101204, end: 20110607
  6. PROMACTA [Concomitant]
     Indication: GASTRITIS
     Dosage: 150 MG, UNK
     Route: 048
     Dates: start: 20101204, end: 20110607
  7. ARICEPT [Concomitant]
     Indication: DEMENTIA
     Dosage: 5 MG, UNK
     Route: 048
     Dates: start: 20101204, end: 20110607
  8. ISOSORBIDE DINITRATE [Concomitant]
     Indication: ANGINA PECTORIS
     Dosage: 40 MG, UNK
     Route: 065
     Dates: start: 20101204, end: 20110607
  9. CARVEDILOL [Concomitant]
     Indication: HYPERTENSION
     Dosage: 2.5 MG, UNK
     Route: 048
     Dates: start: 20101204, end: 20110607
  10. EXJADE [Suspect]
     Indication: IRON OVERLOAD
     Dosage: 500 MG, DAILY
     Route: 048
     Dates: start: 20101214, end: 20110111
  11. DIOVAN [Concomitant]
     Indication: HYPERTENSION
     Dosage: 40 MG, UNK
     Route: 048
     Dates: start: 20101204, end: 20110607
  12. NIZATIDINE [Concomitant]
     Indication: GASTRITIS
     Dosage: 300 MG, UNK
     Route: 048
     Dates: start: 20101204, end: 20110607
  13. ALLOPURINOL [Concomitant]
     Indication: HYPERURICAEMIA
     Dosage: 100 MG, UNK
     Route: 048
     Dates: start: 20101204, end: 20110607
  14. RISPERIDONE [Concomitant]
     Indication: DEMENTIA
     Dosage: 0.5 MG, UNK
     Route: 048
     Dates: start: 20101204, end: 20110607
  15. RED BLOOD CELLS, CONCENTRATED [Concomitant]
     Dosage: 2 UNITS EVERY 4 WEEKS
     Route: 065
     Dates: start: 20110308, end: 20110607
  16. RED BLOOD CELLS, CONCENTRATED [Concomitant]
     Dosage: 2 UNITS EVERY 1 TO 2 WEEKS
     Route: 065
     Dates: start: 20110607, end: 20110704
  17. RED BLOOD CELLS, CONCENTRATED [Concomitant]
     Dosage: 2 UNITS EVERY 4 TO 8 WEEKS
     Route: 065
     Dates: start: 20110208, end: 20110308

REACTIONS (4)
  - RENAL IMPAIRMENT [None]
  - FRACTURE [None]
  - DEATH [None]
  - FALL [None]
